FAERS Safety Report 8371708-0 (Version None)
Quarter: 2012Q2

REPORT INFORMATION
  Report Type: 
  Country: None (occurrence: None)
  Receive Date: 20120518
  Receipt Date: 20120515
  Transmission Date: 20120825
  Serious: Yes (Death)
  Sender: FDA-Public Use
  Company Number: CN-ROCHE-1069357

PATIENT
  Sex: Female
  Weight: 58 kg

DRUGS (9)
  1. VALPROATE SODIUM [Concomitant]
     Indication: SCHIZOPHRENIA
     Route: 048
     Dates: start: 20020101, end: 20120515
  2. TAMIFLU [Suspect]
     Indication: PRODUCT USED FOR UNKNOWN INDICATION
  3. SEROQUEL [Concomitant]
     Indication: SCHIZOPHRENIA
     Route: 048
     Dates: start: 20020101, end: 20120515
  4. RISPERDAL [Concomitant]
     Indication: SCHIZOPHRENIA
     Route: 048
     Dates: start: 20020101, end: 20120515
  5. PEGASYS [Suspect]
     Indication: HEPATITIS B
     Dates: start: 20030101, end: 20090101
  6. PEGASYS [Suspect]
     Route: 058
     Dates: start: 20120513, end: 20120515
  7. LITHIUM CARBONATE [Concomitant]
     Indication: SCHIZOPHRENIA
     Route: 048
     Dates: start: 20020101, end: 20120515
  8. METRONIDAZOLE [Concomitant]
     Indication: MYCOPLASMA INFECTION
     Dates: end: 20120515
  9. PENICILLIN [Concomitant]
     Indication: TERTIARY SYPHILIS

REACTIONS (2)
  - DRUG HYPERSENSITIVITY [None]
  - RESPIRATORY FAILURE [None]
